FAERS Safety Report 8131485-5 (Version None)
Quarter: 2012Q1

REPORT INFORMATION
  Report Type: 
  Country: None (occurrence: None)
  Receive Date: 20120208
  Receipt Date: 20120119
  Transmission Date: 20120608
  Serious: Yes (Death, Hospitalization)
  Sender: FDA-Public Use
  Company Number: AEUSA201200028

PATIENT
  Age: 5 Year
  Sex: Male

DRUGS (4)
  1. FEIBA [Suspect]
     Indication: HAEMARTHROSIS
     Dosage: 70 IU/KG; QOD ; IV
     Route: 042
     Dates: start: 20060101, end: 20110701
  2. FEIBA [Suspect]
     Indication: HAEMOPHILIA A WITH ANTI FACTOR VIII
     Dosage: 70 IU/KG; QOD ; IV
     Route: 042
     Dates: start: 20060101, end: 20110701
  3. ALPHANATE [Suspect]
     Indication: HAEMOPHILIA A WITH ANTI FACTOR VIII
     Dosage: 200 IU / KG; QD; IV
     Route: 042
     Dates: start: 20070901, end: 20110701
  4. ALPHANATE [Suspect]
     Indication: IMMUNE TOLERANCE INDUCTION
     Dosage: 200 IU / KG; QD; IV
     Route: 042
     Dates: start: 20070901, end: 20110701

REACTIONS (10)
  - CARDIOMEGALY [None]
  - FATIGUE [None]
  - OEDEMA PERIPHERAL [None]
  - STAPHYLOCOCCUS TEST POSITIVE [None]
  - RIGHT VENTRICULAR FAILURE [None]
  - HAEMOPTYSIS [None]
  - DYSPNOEA EXERTIONAL [None]
  - PNEUMONIA [None]
  - PULMONARY EMBOLISM [None]
  - VON WILLEBRAND'S FACTOR ACTIVITY INCREASED [None]
